FAERS Safety Report 23087510 (Version 1)
Quarter: 2023Q4

REPORT INFORMATION
  Report Type: Report from Study
  Country: FR (occurrence: FR)
  Receive Date: 20231020
  Receipt Date: 20231020
  Transmission Date: 20240110
  Serious: Yes (Hospitalization, Other)
  Sender: FDA-Public Use
  Company Number: FR-Merck Healthcare KGaA-2023481153

PATIENT
  Age: 6 Year
  Sex: Female
  Weight: 12 kg

DRUGS (2)
  1. SAIZEN [Suspect]
     Active Substance: SOMATROPIN
     Indication: Product used for unknown indication
     Route: 058
     Dates: start: 20230220
  2. SAIZEN [Suspect]
     Active Substance: SOMATROPIN

REACTIONS (4)
  - Arterial disorder [Unknown]
  - Cerebral hypoperfusion [Recovering/Resolving]
  - Injection site bruising [Unknown]
  - Product dose omission in error [Recovered/Resolved]

NARRATIVE: CASE EVENT DATE: 20231005
